FAERS Safety Report 17575253 (Version 6)
Quarter: 2021Q3

REPORT INFORMATION
  Report Type: Spontaneous
  Country: US (occurrence: US)
  Receive Date: 20200324
  Receipt Date: 20210914
  Transmission Date: 20211014
  Serious: Yes (Hospitalization, Other)
  Sender: FDA-Public Use
  Company Number: US-GILEAD-2020-0455974

PATIENT
  Sex: Male
  Weight: 82.99 kg

DRUGS (51)
  1. TRUVADA [Suspect]
     Active Substance: EMTRICITABINE\TENOFOVIR DISOPROXIL FUMARATE
     Dosage: UNK
     Route: 065
     Dates: start: 200903, end: 201809
  2. OMEPRAZOLE. [Concomitant]
     Active Substance: OMEPRAZOLE
  3. CYCLOBENZAPRINE. [Concomitant]
     Active Substance: CYCLOBENZAPRINE
  4. LUNESTA [Concomitant]
     Active Substance: ESZOPICLONE
  5. SPIRIVA [Concomitant]
     Active Substance: TIOTROPIUM BROMIDE MONOHYDRATE
  6. VENTOLIN [Concomitant]
     Active Substance: ALBUTEROL SULFATE
  7. MOXIFLOXACIN. [Concomitant]
     Active Substance: MOXIFLOXACIN
  8. MUCINEX [Concomitant]
     Active Substance: GUAIFENESIN
  9. TRUVADA [Suspect]
     Active Substance: EMTRICITABINE\TENOFOVIR DISOPROXIL FUMARATE
     Dosage: UNK
     Route: 065
     Dates: start: 201305, end: 201809
  10. COMBIVIR [Concomitant]
     Active Substance: LAMIVUDINE\ZIDOVUDINE
  11. HYDROCODONE/ACETAMINOPHEN [Concomitant]
     Active Substance: ACETAMINOPHEN\HYDROCODONE
  12. ALBUTEROL [SALBUTAMOL] [Concomitant]
     Active Substance: ALBUTEROL
  13. DOCUSATE SODIUM. [Concomitant]
     Active Substance: DOCUSATE SODIUM
  14. AUGMENTIN [Concomitant]
     Active Substance: AMOXICILLIN\CLAVULANATE POTASSIUM
  15. JANUMET [Concomitant]
     Active Substance: METFORMIN HYDROCHLORIDE\SITAGLIPTIN PHOSPHATE
  16. TRAMADOL. [Concomitant]
     Active Substance: TRAMADOL
  17. TRIAMCINOLONE [Concomitant]
     Active Substance: TRIAMCINOLONE
  18. RANITIDINE. [Concomitant]
     Active Substance: RANITIDINE
  19. LIDOCAINE. [Concomitant]
     Active Substance: LIDOCAINE
  20. TRIUMEQ [Concomitant]
     Active Substance: ABACAVIR SULFATE\DOLUTEGRAVIR SODIUM\LAMIVUDINE
  21. ATORVASTATIN [Concomitant]
     Active Substance: ATORVASTATIN
  22. AMOXICILLIN. [Concomitant]
     Active Substance: AMOXICILLIN
  23. GUAIFENESIN/PSEUDOEPHEDRINE [Concomitant]
     Active Substance: GUAIFENESIN\PSEUDOEPHEDRINE HYDROCHLORIDE
  24. LORATADINE. [Concomitant]
     Active Substance: LORATADINE
  25. ZITHROMAX [Concomitant]
     Active Substance: AZITHROMYCIN DIHYDRATE
  26. VIAGRA [Concomitant]
     Active Substance: SILDENAFIL CITRATE
  27. FLUCONAZOLE. [Concomitant]
     Active Substance: FLUCONAZOLE
  28. TRUVADA [Suspect]
     Active Substance: EMTRICITABINE\TENOFOVIR DISOPROXIL FUMARATE
     Indication: HIV INFECTION
     Dosage: UNK
     Route: 048
     Dates: start: 2001
  29. BACLOFEN. [Concomitant]
     Active Substance: BACLOFEN
  30. CRESTOR [Concomitant]
     Active Substance: ROSUVASTATIN CALCIUM
  31. LEVITRA [Concomitant]
     Active Substance: VARDENAFIL HYDROCHLORIDE
  32. ZOLPIDEM [Concomitant]
     Active Substance: ZOLPIDEM TARTRATE
  33. ASPIRIN [ACETYLSALICYLIC ACID] [Concomitant]
     Active Substance: ASPIRIN
  34. VIREAD [Suspect]
     Active Substance: TENOFOVIR DISOPROXIL FUMARATE
     Indication: HIV INFECTION
     Dosage: UNK
     Route: 048
     Dates: start: 20060110, end: 20090220
  35. VIREAD [Suspect]
     Active Substance: TENOFOVIR DISOPROXIL FUMARATE
     Dosage: UNK
     Route: 065
     Dates: start: 2001, end: 20090220
  36. FEXOFENADINE [Concomitant]
     Active Substance: FEXOFENADINE HYDROCHLORIDE
  37. FOSINOPRIL [Concomitant]
     Active Substance: FOSINOPRIL
  38. ZEGERID [OMEPRAZOLE] [Concomitant]
     Active Substance: OMEPRAZOLE
  39. KALETRA [Concomitant]
     Active Substance: LOPINAVIR\RITONAVIR
  40. PREZISTA [Concomitant]
     Active Substance: DARUNAVIR ETHANOLATE
  41. AMIBID LA [Concomitant]
  42. BENZONATATE. [Concomitant]
     Active Substance: BENZONATATE
  43. FLOVENT [Concomitant]
     Active Substance: FLUTICASONE PROPIONATE
  44. MUPIROCIN. [Concomitant]
     Active Substance: MUPIROCIN
  45. ESOMEPRAZOLE MAGNESIUM. [Concomitant]
     Active Substance: ESOMEPRAZOLE MAGNESIUM
  46. NORVIR [Concomitant]
     Active Substance: RITONAVIR
  47. IBUPROFEN. [Concomitant]
     Active Substance: IBUPROFEN
  48. NEXIUM I.V. [Concomitant]
     Active Substance: ESOMEPRAZOLE SODIUM
  49. INFLUENZA VACCINE [Concomitant]
     Active Substance: INFLUENZA VIRUS VACCINE
  50. KETOCONAZOLE. [Concomitant]
     Active Substance: KETOCONAZOLE
  51. NEOMYCIN AND POLYMYXIN B SULFATES AND HYDROCORTISONE [Concomitant]
     Active Substance: HYDROCORTISONE\NEOMYCIN SULFATE\POLYMYXIN B SULFATE

REACTIONS (18)
  - Osteoporosis [Not Recovered/Not Resolved]
  - Liver injury [Unknown]
  - Dysgraphia [Not Recovered/Not Resolved]
  - Fracture [Not Recovered/Not Resolved]
  - Economic problem [Not Recovered/Not Resolved]
  - Joint range of motion decreased [Not Recovered/Not Resolved]
  - Bone density decreased [Not Recovered/Not Resolved]
  - Osteoporosis [Not Recovered/Not Resolved]
  - Suicidal ideation [Not Recovered/Not Resolved]
  - Emotional distress [Not Recovered/Not Resolved]
  - Hand fracture [Unknown]
  - Anxiety [Not Recovered/Not Resolved]
  - Bipolar disorder [Not Recovered/Not Resolved]
  - Acute kidney injury [Unknown]
  - Pain [Not Recovered/Not Resolved]
  - Anhedonia [Not Recovered/Not Resolved]
  - Multiple fractures [Recovered/Resolved]
  - Depression [Not Recovered/Not Resolved]

NARRATIVE: CASE EVENT DATE: 2003
